FAERS Safety Report 6237557-4 (Version None)
Quarter: 2009Q2

REPORT INFORMATION
  Report Type: 
  Country: None (occurrence: None)
  Receive Date: 20090617
  Receipt Date: 20090605
  Transmission Date: 20091009
  Serious: Yes (Hospitalization)
  Sender: FDA-Public Use
  Company Number: 8027361

PATIENT
  Sex: Male
  Weight: 34.1 kg

DRUGS (6)
  1. KEPPRA [Suspect]
     Indication: CONVULSION
     Dosage: 750 MG 2/D PO
     Route: 048
  2. KEPPRA [Suspect]
     Indication: CONVULSION
     Dosage: 1000 MG 2/D PO
     Route: 048
     Dates: end: 20070901
  3. KEPPRA [Suspect]
     Indication: CONVULSION
     Dosage: 500 MG 2/D PO
     Route: 048
     Dates: start: 20070901
  4. KEPPRA [Suspect]
     Indication: CONVULSION
     Dosage: PO
     Route: 048
  5. LEVETIRACETAM [Suspect]
     Dosage: 1500 MG 2/D PO
  6. TRILEPTAL [Concomitant]

REACTIONS (8)
  - AGGRESSION [None]
  - ANXIETY [None]
  - APATHY [None]
  - DRUG INEFFECTIVE [None]
  - HOSTILITY [None]
  - NERVOUSNESS [None]
  - PERSONALITY CHANGE [None]
  - PETIT MAL EPILEPSY [None]
